FAERS Safety Report 15056960 (Version 1)
Quarter: 2018Q2

REPORT INFORMATION
  Report Type: Spontaneous
  Country: US (occurrence: US)
  Receive Date: 20180624
  Receipt Date: 20180624
  Transmission Date: 20180711
  Serious: No
  Sender: FDA-Public Use
  Company Number: US-ELI_LILLY_AND_COMPANY-US201806009357

PATIENT
  Sex: Female

DRUGS (1)
  1. TRULICITY [Suspect]
     Active Substance: DULAGLUTIDE
     Indication: GLYCOSYLATED HAEMOGLOBIN INCREASED
     Dosage: UNK, UNKNOWN
     Route: 065

REACTIONS (5)
  - Abdominal pain [Unknown]
  - Nausea [Unknown]
  - Feeding disorder [Unknown]
  - Vomiting [Unknown]
  - Constipation [Unknown]
